FAERS Safety Report 9986958 (Version 2)
Quarter: 2014Q1

REPORT INFORMATION
  Report Type: Spontaneous
  Country: FR (occurrence: FR)
  Receive Date: 20140307
  Receipt Date: 20140307
  Transmission Date: 20141002
  Serious: Yes (Hospitalization)
  Sender: FDA-Public Use
  Company Number: PHHY2014FR015925

PATIENT
  Age: 7 Year
  Sex: Male

DRUGS (4)
  1. NEORAL [Suspect]
     Indication: CROHN^S DISEASE
     Dosage: 0.6 ML, BID
     Route: 048
     Dates: start: 20131222, end: 20131231
  2. NEORAL [Suspect]
     Dosage: 6 ML, BID
     Route: 048
     Dates: start: 20140101, end: 20140102
  3. NEORAL [Suspect]
     Dosage: UNK
     Dates: start: 20140110
  4. PENTASA [Concomitant]
     Indication: CROHN^S DISEASE
     Dates: start: 201307

REACTIONS (4)
  - Immunosuppressant drug level increased [Recovered/Resolved]
  - Blood creatinine increased [Recovered/Resolved]
  - Accidental overdose [Recovered/Resolved]
  - Wrong technique in drug usage process [Recovered/Resolved]
